FAERS Safety Report 17791230 (Version 1)
Quarter: 2020Q2

REPORT INFORMATION
  Report Type: Spontaneous
  Country: US (occurrence: US)
  Receive Date: 20200514
  Receipt Date: 20200514
  Transmission Date: 20200714
  Serious: Yes (Death)
  Sender: FDA-Public Use
  Company Number: None

PATIENT
  Age: 39 Year
  Sex: Male

DRUGS (4)
  1. LEUCOVORIN SDV [Concomitant]
  2. OXALIPLATIN SDV [Concomitant]
  3. DOCETAXEL SDV 20MG/ML [Suspect]
     Active Substance: DOCETAXEL
     Indication: GASTRIC CANCER
     Route: 042
     Dates: start: 202001, end: 202004
  4. FLUOROURACIL SDV [Concomitant]

REACTIONS (1)
  - Death [None]

NARRATIVE: CASE EVENT DATE: 20200414
